FAERS Safety Report 13593713 (Version 2)
Quarter: 2018Q2

REPORT INFORMATION
  Report Type: Report from Study
  Country: KR (occurrence: KR)
  Receive Date: 20170530
  Receipt Date: 20180528
  Transmission Date: 20180711
  Serious: Yes (Death, Hospitalization)
  Sender: FDA-Public Use
  Company Number: KR-ROCHE-1929803

PATIENT
  Age: 56 Year
  Sex: Female
  Weight: 55 kg

DRUGS (5)
  1. LYRICA [Concomitant]
     Active Substance: PREGABALIN
     Indication: FIBROMYALGIA
     Dosage: 1 CAP
     Route: 065
     Dates: start: 20170222
  2. FOLIC ACID. [Concomitant]
     Active Substance: FOLIC ACID
     Route: 065
     Dates: start: 20160907
  3. TOCILIZUMAB. [Suspect]
     Active Substance: TOCILIZUMAB
     Indication: RHEUMATOID ARTHRITIS
     Route: 042
     Dates: start: 20170322
  4. METHOTREXATE. [Concomitant]
     Active Substance: METHOTREXATE
     Indication: RHEUMATOID ARTHRITIS
     Route: 065
     Dates: start: 20150429
  5. LYRICA [Concomitant]
     Active Substance: PREGABALIN
     Indication: FIBROMYALGIA
     Dosage: 1 CAP
     Route: 065
     Dates: start: 20170222

REACTIONS (7)
  - Cellulitis [Fatal]
  - Pneumonia [Fatal]
  - Autoimmune disorder [Fatal]
  - Small intestinal haemorrhage [Fatal]
  - Haemolytic uraemic syndrome [Fatal]
  - Pulmonary oedema [Fatal]
  - Sepsis [Fatal]

NARRATIVE: CASE EVENT DATE: 20170412
